FAERS Safety Report 4899906-9 (Version None)
Quarter: 2006Q1

REPORT INFORMATION
  Report Type: 
  Country: None (occurrence: None)
  Receive Date: 20060118
  Receipt Date: 20050916
  Transmission Date: 20060701
  Serious: No
  Sender: FDA-Public Use
  Company Number: 2005001824

PATIENT
  Age: 85 Year
  Sex: Male

DRUGS (2)
  1. TARCEVA [Suspect]
     Indication: LUNG NEOPLASM MALIGNANT
     Dosage: 150 MG (QD), ORAL
     Route: 048
     Dates: start: 20050831
  2. PREDNISONE TAB [Concomitant]

REACTIONS (6)
  - ACNE [None]
  - FATIGUE [None]
  - HYPERSENSITIVITY [None]
  - LACRIMATION INCREASED [None]
  - NASAL ULCER [None]
  - RASH [None]
